FAERS Safety Report 16293643 (Version 1)
Quarter: 2019Q2

REPORT INFORMATION
  Report Type: Report from Study
  Country: US (occurrence: US)
  Receive Date: 20190509
  Receipt Date: 20190509
  Transmission Date: 20190711
  Serious: Yes (Other)
  Sender: FDA-Public Use
  Company Number: US-GILEAD-2019-0406807

PATIENT
  Age: 70 Year
  Sex: Female

DRUGS (1)
  1. RANOLAZINE. [Suspect]
     Active Substance: RANOLAZINE
     Indication: ANGINA PECTORIS
     Dosage: 1000 MG, BID
     Route: 048
     Dates: end: 20190425

REACTIONS (11)
  - Pharyngeal swelling [Not Recovered/Not Resolved]
  - Cardiac pacemaker insertion [Unknown]
  - Rotator cuff syndrome [Not Recovered/Not Resolved]
  - Hypertension [Unknown]
  - Platelet count decreased [Unknown]
  - Product use issue [Not Recovered/Not Resolved]
  - Hip arthroplasty [Unknown]
  - Hepatic cirrhosis [Unknown]
  - White blood cell count decreased [Unknown]
  - Blood count abnormal [Unknown]
  - Diabetes mellitus [Unknown]

NARRATIVE: CASE EVENT DATE: 20190426
